FAERS Safety Report 18511127 (Version 1)
Quarter: 2020Q4

REPORT INFORMATION
  Report Type: Spontaneous
  Country: US (occurrence: US)
  Receive Date: 20201117
  Receipt Date: 20201117
  Transmission Date: 20210114
  Serious: No
  Sender: FDA-Public Use
  Company Number: US-PFIZER INC-2020447433

PATIENT
  Age: 55 Year
  Sex: Male

DRUGS (3)
  1. CELEBREX [Suspect]
     Active Substance: CELECOXIB
     Indication: PYREXIA
     Dosage: UNK
     Dates: start: 2020
  2. BRAFTOVI [Concomitant]
     Active Substance: ENCORAFENIB
     Dosage: 450 MG, 1X/DAY
     Dates: start: 20201012
  3. MEKTOVI [Concomitant]
     Active Substance: BINIMETINIB
     Dosage: 45 MG, 2X/DAY
     Dates: start: 20201012

REACTIONS (4)
  - Drug effective for unapproved indication [Unknown]
  - Off label use [Unknown]
  - Fatigue [Unknown]
  - Product use in unapproved indication [Unknown]

NARRATIVE: CASE EVENT DATE: 2020
